FAERS Safety Report 10136864 (Version 1)
Quarter: 2014Q2

REPORT INFORMATION
  Report Type: Spontaneous
  Country: US (occurrence: None)
  Receive Date: 20140425
  Receipt Date: 20140425
  Transmission Date: 20141212
  Serious: Yes (Hospitalization)
  Sender: FDA-Public Use
  Company Number: UTC-043662

PATIENT
  Age: 60 Year
  Sex: Female
  Weight: 72.58 kg

DRUGS (1)
  1. REMODULIN [Suspect]
     Indication: PULMONARY ARTERIAL HYPERTENSION
     Dosage: 138.24 UG/KG (0.096 UG/KG, 1 IN 1 MIN) INTRAVENOUS DRIP
     Route: 041
     Dates: start: 20080310

REACTIONS (3)
  - Lower limb fracture [None]
  - Fall [None]
  - Foot fracture [None]
